FAERS Safety Report 6063667-0 (Version None)
Quarter: 2009Q1

REPORT INFORMATION
  Report Type: 
  Country: None (occurrence: None)
  Receive Date: 20090129
  Receipt Date: 20090120
  Transmission Date: 20090719
  Serious: Yes (Disabling)
  Sender: FDA-Public Use
  Company Number: OSCN-PR-0809S-0531

PATIENT
  Age: 68 Year
  Sex: Male

DRUGS (4)
  1. OMNISCAN [Suspect]
     Indication: BACK PAIN
     Dosage: SINGLE DOSE : SINGLE DOSE
     Dates: start: 20040920, end: 20040920
  2. OMNISCAN [Suspect]
     Indication: RENAL ARTERY STENOSIS
     Dosage: SINGLE DOSE : SINGLE DOSE
     Dates: start: 20040920, end: 20040920
  3. OMNISCAN [Suspect]
     Indication: BACK PAIN
     Dosage: SINGLE DOSE : SINGLE DOSE
     Dates: start: 20050121, end: 20050121
  4. OMNISCAN [Suspect]
     Indication: RENAL ARTERY STENOSIS
     Dosage: SINGLE DOSE : SINGLE DOSE
     Dates: start: 20050121, end: 20050121

REACTIONS (1)
  - NEPHROGENIC SYSTEMIC FIBROSIS [None]
